FAERS Safety Report 8052663-X (Version None)
Quarter: 2012Q1

REPORT INFORMATION
  Report Type: 
  Country: None (occurrence: None)
  Receive Date: 20120118
  Receipt Date: 20120118
  Transmission Date: 20120608
  Serious: Yes (Hospitalization)
  Sender: FDA-Public Use
  Company Number: None

PATIENT
  Age: 35 Year
  Sex: Male
  Weight: 89 kg

DRUGS (1)
  1. TOPIRAMATE [Suspect]
     Indication: CONVULSION
     Dosage: 25MG -HALF TABS-
     Route: 048
     Dates: start: 20120106, end: 20120116

REACTIONS (3)
  - HEADACHE [None]
  - VISION BLURRED [None]
  - GLAUCOMA [None]
